FAERS Safety Report 7991931-4 (Version None)
Quarter: 2011Q4

REPORT INFORMATION
  Report Type: 
  Country: None (occurrence: None)
  Receive Date: 20111219
  Receipt Date: 20110302
  Transmission Date: 20120403
  Serious: No
  Sender: FDA-Public Use
  Company Number: US-ASTRAZENECA-2011SE11506

PATIENT
  Age: 82 Year
  Sex: Female

DRUGS (7)
  1. BINICAR [Concomitant]
  2. NIFEDIPINE [Concomitant]
     Indication: BLOOD PRESSURE
  3. CRESTOR [Suspect]
     Indication: HYPERCHOLESTEROLAEMIA
     Route: 048
  4. MULTI-VITAMINS [Concomitant]
     Indication: SUPPLEMENTATION THERAPY
  5. ZOLOFT [Concomitant]
  6. PLAVIX [Concomitant]
     Indication: CARDIAC DISORDER
  7. HYDROCHLOROTHIAZIDE [Concomitant]
     Indication: BLOOD PRESSURE

REACTIONS (2)
  - JOINT STIFFNESS [None]
  - FATIGUE [None]
